FAERS Safety Report 5010051-4 (Version None)
Quarter: 2006Q2

REPORT INFORMATION
  Report Type: 
  Country: None (occurrence: None)
  Receive Date: 20060523
  Receipt Date: 20060510
  Transmission Date: 20061013
  Serious: Yes (Other)
  Sender: FDA-Public Use
  Company Number: 2006063303

PATIENT
  Age: 57 Year
  Sex: Male
  Weight: 70 kg

DRUGS (1)
  1. DILANTIN [Suspect]
     Indication: PROPHYLAXIS
     Dosage: 300 MG (300 MG, 1 IN 1D), ORAL
     Route: 048
     Dates: start: 19830919, end: 19831014

REACTIONS (1)
  - HEPATIC FUNCTION ABNORMAL [None]
